FAERS Safety Report 15609020 (Version 1)
Quarter: 2018Q4

REPORT INFORMATION
  Report Type: Spontaneous
  Country: SK (occurrence: SK)
  Receive Date: 20181112
  Receipt Date: 20181112
  Transmission Date: 20190205
  Serious: Yes (Hospitalization, Other)
  Sender: FDA-Public Use
  Company Number: SK-B.I. PHARMACEUTICALS,INC./RIDGEFIELD-2018-BI-050708

PATIENT
  Age: 64 Year
  Sex: Male

DRUGS (3)
  1. GILOTRIF [Suspect]
     Active Substance: AFATINIB
     Indication: NON-SMALL CELL LUNG CANCER
     Route: 048
     Dates: start: 20150716, end: 20150806
  2. GILOTRIF [Suspect]
     Active Substance: AFATINIB
     Route: 048
     Dates: start: 20150812, end: 20150831
  3. GILOTRIF [Suspect]
     Active Substance: AFATINIB
     Route: 048
     Dates: start: 20150831

REACTIONS (11)
  - Skin toxicity [Recovered/Resolved]
  - Off label use [Recovered/Resolved]
  - Diarrhoea [Recovered/Resolved]
  - Paronychia [Recovered/Resolved]
  - Transient ischaemic attack [Recovered/Resolved]
  - Rash [Recovered/Resolved]
  - Erythema [Recovered/Resolved]
  - Lower urinary tract symptoms [Recovered/Resolved]
  - Cerebrovascular accident [Recovered/Resolved]
  - Prostatic specific antigen increased [Recovered/Resolved]
  - Prostatitis [Recovered/Resolved]

NARRATIVE: CASE EVENT DATE: 201507
